FAERS Safety Report 24054390 (Version 1)
Quarter: 2024Q3

REPORT INFORMATION
  Report Type: Spontaneous
  Country: RO (occurrence: RO)
  Receive Date: 20240705
  Receipt Date: 20240705
  Transmission Date: 20241017
  Serious: Yes (Other)
  Sender: AMGEN
  Company Number: RO-AMGEN-ROUSP2024131480

PATIENT
  Age: 50 Year
  Sex: Male

DRUGS (1)
  1. PROLIA [Suspect]
     Active Substance: DENOSUMAB
     Indication: Osteoporosis
     Dosage: UNK
     Route: 065

REACTIONS (4)
  - Hungry bone syndrome [Recovered/Resolved]
  - Tumour embolism [Unknown]
  - Parathyroid tumour [Unknown]
  - Goitre [Unknown]
